FAERS Safety Report 10428662 (Version 1)
Quarter: 2014Q3

REPORT INFORMATION
  Report Type: Spontaneous
  Country: IT (occurrence: None)
  Receive Date: 20140829
  Receipt Date: 20140829
  Transmission Date: 20150326
  Serious: Yes (Other)
  Sender: FDA-Public Use
  Company Number: 2014AP003281

PATIENT
  Age: 32 Year
  Sex: Female

DRUGS (7)
  1. DELORAZEPAM (DELORAZEPAM) ORAL DROPS, SOLUTION [Suspect]
     Active Substance: DELORAZEPAM
     Indication: DEPRESSION
     Dosage: SINGLE
     Route: 048
     Dates: start: 20140401, end: 20140401
  2. DELORAZEPAM (DELORAZEPAM) ORAL DROPS, SOLUTION [Suspect]
     Active Substance: DELORAZEPAM
     Indication: INTENTIONAL SELF-INJURY
     Dosage: SINGLE
     Route: 048
     Dates: start: 20140401, end: 20140401
  3. PAROXETINE [Suspect]
     Active Substance: PAROXETINE\PAROXETINE HYDROCHLORIDE
     Indication: INTENTIONAL SELF-INJURY
     Dosage: SINGLE
     Route: 048
     Dates: start: 20140401, end: 20140401
  4. LEXOTAN [Suspect]
     Active Substance: BROMAZEPAM
     Indication: INTENTIONAL SELF-INJURY
     Dosage: SINGLE
     Route: 048
     Dates: start: 20140401, end: 20140401
  5. VELAMOX [Suspect]
     Active Substance: AMOXICILLIN
     Indication: INTENTIONAL SELF-INJURY
     Dosage: SINGLE
     Route: 048
     Dates: start: 20140401, end: 20140401
  6. VELAMOX [Suspect]
     Active Substance: AMOXICILLIN
     Indication: DEPRESSION
     Dosage: SINGLE
     Route: 048
     Dates: start: 20140401, end: 20140401
  7. LEXOTAN [Suspect]
     Active Substance: BROMAZEPAM
     Dosage: SINGLE
     Route: 048
     Dates: start: 20140401, end: 20140401

REACTIONS (3)
  - Intentional self-injury [None]
  - Sopor [None]
  - Drug abuse [None]

NARRATIVE: CASE EVENT DATE: 20140401
